FAERS Safety Report 10612283 (Version 1)
Quarter: 2014Q4

REPORT INFORMATION
  Report Type: Spontaneous
  Country: AT (occurrence: AT)
  Receive Date: 20141127
  Receipt Date: 20141127
  Transmission Date: 20150529
  Serious: Yes (Death, Hospitalization)
  Sender: FDA-Public Use
  Company Number: AT-BRISTOL-MYERS SQUIBB COMPANY-21613112

PATIENT
  Age: 74 Year
  Sex: Female
  Weight: 89.6 kg

DRUGS (4)
  1. AMOXICILLIN + CLAVULANATE [Concomitant]
  2. YERVOY [Suspect]
     Active Substance: IPILIMUMAB
     Indication: METASTATIC MALIGNANT MELANOMA
     Dates: end: 20140716
  3. HYDROCORTISONE. [Concomitant]
     Active Substance: HYDROCORTISONE
     Indication: HYPOPHYSITIS
  4. SEDACORON [Concomitant]
     Active Substance: AMIODARONE HYDROCHLORIDE

REACTIONS (4)
  - Cardiac failure [Unknown]
  - Transaminases increased [Unknown]
  - Acute hepatic failure [Fatal]
  - Coagulopathy [Unknown]

NARRATIVE: CASE EVENT DATE: 20141106
